FAERS Safety Report 8546326-1 (Version None)
Quarter: 2012Q3

REPORT INFORMATION
  Report Type: 
  Country: None (occurrence: None)
  Receive Date: 20120727
  Receipt Date: 20120126
  Transmission Date: 20120928
  Serious: No
  Sender: FDA-Public Use
  Company Number: US-ASTRAZENECA-2011SE75951

PATIENT
  Age: 65 Year
  Sex: Female
  Weight: 76.2 kg

DRUGS (14)
  1. ISORB MONO [Concomitant]
  2. ASPIRIN [Concomitant]
  3. FISH OIL [Concomitant]
  4. MELOXAN [Concomitant]
     Indication: ANTIINFLAMMATORY THERAPY
  5. XELEXA [Concomitant]
  6. LAMICTAL [Concomitant]
     Indication: MOOD SWINGS
  7. LISINOPRIL [Concomitant]
     Indication: HYPERTENSION
  8. TRAVASTATIN [Concomitant]
     Indication: BLOOD CHOLESTEROL ABNORMAL
  9. ERYTHROMYCIN [Concomitant]
     Indication: ANTIBIOTIC THERAPY
  10. SEROQUEL [Suspect]
     Indication: BIPOLAR DISORDER
     Route: 048
  11. SEROQUEL [Suspect]
     Route: 048
  12. XANAX [Concomitant]
  13. SEROQUEL [Suspect]
     Route: 048
  14. XANAX [Concomitant]
     Dosage: 2 MG IN THE MORNING AND 1 MG SOMETIMES IN THE DAY AND SOMETIMES 1 MG AT NIGHT

REACTIONS (23)
  - NASOPHARYNGITIS [None]
  - ADVERSE EVENT [None]
  - ADJUSTMENT DISORDER [None]
  - BRONCHITIS [None]
  - DEPRESSION [None]
  - FATIGUE [None]
  - NERVE COMPRESSION [None]
  - BIPOLAR DISORDER [None]
  - WEIGHT INCREASED [None]
  - HEPATIC NEOPLASM [None]
  - INSOMNIA [None]
  - TACHYPHRENIA [None]
  - DRUG DOSE OMISSION [None]
  - POOR QUALITY SLEEP [None]
  - RESPIRATORY TRACT CONGESTION [None]
  - SOCIAL AVOIDANT BEHAVIOUR [None]
  - CARDIAC FAILURE CONGESTIVE [None]
  - PAIN [None]
  - INTERVERTEBRAL DISC PROTRUSION [None]
  - PNEUMONIA [None]
  - STRESS [None]
  - DRUG INEFFECTIVE [None]
  - MUSCLE SPASMS [None]
